FAERS Safety Report 21850747 (Version 1)
Quarter: 2023Q1

REPORT INFORMATION
  Report Type: Spontaneous
  Country: US (occurrence: US)
  Receive Date: 20230111
  Receipt Date: 20230111
  Transmission Date: 20230418
  Serious: No
  Sender: FDA-Public Use
  Company Number: US-ELI_LILLY_AND_COMPANY-US202212008887

PATIENT
  Age: 16 Year
  Sex: Female

DRUGS (2)
  1. HUMATROPE [Suspect]
     Active Substance: SOMATROPIN
     Indication: Product used for unknown indication
     Dosage: 3.4 MG, UNKNOWN (FROM THE 12 MG CARTRIDGE)
     Route: 058
     Dates: start: 2018
  2. HUMATROPE [Suspect]
     Active Substance: SOMATROPIN
     Dosage: 3.4 MG, UNKNOWN (FROM THE 24 MG CARTRIDGE)
     Route: 058
     Dates: start: 20221211

REACTIONS (2)
  - Incorrect dose administered [Unknown]
  - Wrong technique in product usage process [Unknown]

NARRATIVE: CASE EVENT DATE: 20221211
